FAERS Safety Report 24605095 (Version 1)
Quarter: 2024Q4

REPORT INFORMATION
  Report Type: Spontaneous
  Country: US (occurrence: US)
  Receive Date: 20241111
  Receipt Date: 20241111
  Transmission Date: 20250115
  Serious: No
  Sender: PARATEK PHARMACEUTICALS
  Company Number: US-PARATEK PHARMACEUTICALS, INC.-2024PTK00608

PATIENT
  Age: 76 Year
  Sex: Female

DRUGS (3)
  1. NUZYRA [Suspect]
     Active Substance: OMADACYCLINE
     Indication: Wound infection bacterial
     Dosage: 300 MG, 1X/DAY
     Route: 048
     Dates: start: 20240716, end: 20240722
  2. BRILINTA [Concomitant]
     Active Substance: TICAGRELOR
     Dosage: UNK, 2X/DAY
  3. ASPIRIN [Concomitant]
     Active Substance: ASPIRIN

REACTIONS (2)
  - Dyspnoea [Recovered/Resolved]
  - Off label use [Recovered/Resolved]

NARRATIVE: CASE EVENT DATE: 20240701
